FAERS Safety Report 4532700-7 (Version None)
Quarter: 2004Q4

REPORT INFORMATION
  Report Type: 
  Country: None (occurrence: None)
  Receive Date: 20041220
  Receipt Date: 20041220
  Transmission Date: 20050328
  Serious: Yes (Other)
  Sender: FDA-Public Use
  Company Number: None

PATIENT
  Age: 33 Year
  Sex: Male
  Weight: 91 kg

DRUGS (1)
  1. ALTEPLASE 2 MG GENENTECH [Suspect]
     Indication: CATHETER RELATED COMPLICATION
     Dosage: 2 MG X 1
     Dates: start: 20041009

REACTIONS (3)
  - INFUSION SITE ERYTHEMA [None]
  - PRURITUS [None]
  - RASH [None]
